FAERS Safety Report 8262394-9 (Version None)
Quarter: 2012Q2

REPORT INFORMATION
  Report Type: 
  Country: None (occurrence: None)
  Receive Date: 20120405
  Receipt Date: 20120329
  Transmission Date: 20120825
  Serious: Yes (Hospitalization, Other)
  Sender: FDA-Public Use
  Company Number: DE-JNJFOC-20120106457

PATIENT
  Sex: Male
  Weight: 110 kg

DRUGS (4)
  1. DIAZEPAM [Concomitant]
     Route: 042
     Dates: start: 20100612, end: 20100616
  2. VALPROATE SODIUM [Concomitant]
     Route: 042
     Dates: start: 20100612, end: 20100614
  3. ENOXAPARIN SODIUM [Concomitant]
     Route: 058
     Dates: start: 20100612, end: 20100621
  4. HALDOL [Suspect]
     Indication: SCHIZOPHRENIA, PARANOID TYPE
     Route: 042
     Dates: start: 20100612, end: 20100616

REACTIONS (3)
  - EXTRAPYRAMIDAL DISORDER [None]
  - HOSPITALISATION [None]
  - INCORRECT ROUTE OF DRUG ADMINISTRATION [None]
